FAERS Safety Report 11209819 (Version 1)
Quarter: 2015Q2

REPORT INFORMATION
  Report Type: Spontaneous
  Country: US (occurrence: US)
  Receive Date: 20150622
  Receipt Date: 20150622
  Transmission Date: 20150821
  Serious: No
  Sender: FDA-Public Use
  Company Number: US-ASTELLAS-2014US006979

PATIENT
  Sex: Female

DRUGS (2)
  1. VESICARE [Suspect]
     Active Substance: SOLIFENACIN SUCCINATE
     Route: 048
  2. VESICARE [Suspect]
     Active Substance: SOLIFENACIN SUCCINATE
     Indication: MIXED INCONTINENCE
     Dosage: 5 MG, TWICE DAILY, ONCE IN  THE MORNING, ONCE IN THE EVENING
     Route: 048
     Dates: start: 2010

REACTIONS (3)
  - Drug ineffective for unapproved indication [Unknown]
  - Incontinence [Unknown]
  - Inappropriate schedule of drug administration [Unknown]
